FAERS Safety Report 14611850 (Version 1)
Quarter: 2018Q1

REPORT INFORMATION
  Report Type: Spontaneous
  Country: PL (occurrence: PL)
  Receive Date: 20180308
  Receipt Date: 20180308
  Transmission Date: 20180509
  Serious: Yes (Hospitalization)
  Sender: FDA-Public Use
  Company Number: PL-BAUSCH-BL-2018-005930

PATIENT
  Age: 86 Year
  Sex: Male

DRUGS (2)
  1. AMOXICILLIN/CLAVULANIC ACID [Suspect]
     Active Substance: AMOXICILLIN\CLAVULANIC ACID
     Indication: DIVERTICULUM
     Route: 042
     Dates: start: 201802
  2. METRONIDAZOL [Suspect]
     Active Substance: METRONIDAZOLE
     Indication: DIVERTICULUM
     Route: 042
     Dates: start: 201802

REACTIONS (3)
  - Subileus [Recovered/Resolved]
  - Drug ineffective [Unknown]
  - Flatulence [Recovered/Resolved]

NARRATIVE: CASE EVENT DATE: 201802
